FAERS Safety Report 8178046-X (Version None)
Quarter: 2012Q1

REPORT INFORMATION
  Report Type: 
  Country: None (occurrence: None)
  Receive Date: 20120126
  Receipt Date: 20111111
  Transmission Date: 20120608
  Serious: No
  Sender: FDA-Public Use
  Company Number: PHEH2011US07558

PATIENT
  Sex: Male

DRUGS (1)
  1. AFINITOR [Suspect]
     Dosage: 10 MG, DAILY, ORAL
     Route: 048
     Dates: start: 20110926

REACTIONS (5)
  - APHAGIA [None]
  - WEIGHT DECREASED [None]
  - MALAISE [None]
  - OROPHARYNGEAL BLISTERING [None]
  - SOMNOLENCE [None]
